FAERS Safety Report 7630103 (Version 2)
Quarter: 2018Q4

REPORT INFORMATION
  Report Type: Spontaneous
  Country: IT (occurrence: IT)
  Receive Date: 20101014
  Receipt Date: 20181221
  Transmission Date: 20190205
  Serious: Yes (Hospitalization)
  Sender: FDA-Public Use
  Company Number: GXKR2010IT11199

PATIENT
  Age: 66 Year
  Sex: Male

DRUGS (2)
  1. OXALIPLATIN. [Suspect]
     Active Substance: OXALIPLATIN
     Indication: ADENOCARCINOMA OF COLON
     Dosage: 140 MG/M2 EVERY 21 DAYS
     Route: 042
  2. FLUOROURACIL. [Concomitant]
     Active Substance: FLUOROURACIL
     Indication: ADENOCARCINOMA OF COLON
     Dosage: 12 MG/KG, UNK
     Route: 042

REACTIONS (10)
  - Anxiety [Unknown]
  - Mental status changes [Unknown]
  - Dehydration [Unknown]
  - Metabolic acidosis [Recovered/Resolved]
  - Pyrexia [Unknown]
  - Renal tubular acidosis [Recovered/Resolved]
  - Hyperchloraemia [Recovered/Resolved]
  - Lethargy [Unknown]
  - Hypokalaemia [Recovered/Resolved]
  - Headache [Unknown]
